FAERS Safety Report 5748728-5 (Version None)
Quarter: 2008Q2

REPORT INFORMATION
  Report Type: 
  Country: None (occurrence: None)
  Receive Date: 20080522
  Receipt Date: 20080508
  Transmission Date: 20081010
  Serious: Yes (Other)
  Sender: FDA-Public Use
  Company Number: US-GDP-08403955

PATIENT
  Sex: Female
  Weight: 63.5036 kg

DRUGS (11)
  1. OREACEA (DOXYCYCLINE) 40 MG [Suspect]
     Indication: DERMATITIS
     Dosage: 40 MG QD; ORAL
     Route: 048
     Dates: start: 20080415, end: 20080508
  2. OREACEA (DOXYCYCLINE) 40 MG [Suspect]
     Indication: ROSACEA
     Dosage: 40 MG QD; ORAL
     Route: 048
     Dates: start: 20080415, end: 20080508
  3. MAXALT [Concomitant]
  4. AMERGE [Concomitant]
  5. ALLEGRA [Concomitant]
  6. PREVACID [Concomitant]
  7. MIRALAX [Concomitant]
  8. FEXOFENADINE [Concomitant]
  9. MULTI-VITAMIN [Concomitant]
  10. VITAMIN B-12 [Concomitant]
  11. ESTROGEN NOS [Concomitant]

REACTIONS (5)
  - ALANINE AMINOTRANSFERASE INCREASED [None]
  - ASPARTATE AMINOTRANSFERASE INCREASED [None]
  - BLOOD CREATINE PHOSPHOKINASE INCREASED [None]
  - BLOOD GLUCOSE INCREASED [None]
  - MYALGIA [None]
